FAERS Safety Report 12304830 (Version 1)
Quarter: 2016Q2

REPORT INFORMATION
  Report Type: Spontaneous
  Country: US (occurrence: None)
  Receive Date: 20160425
  Receipt Date: 20160425
  Transmission Date: 20160815
  Serious: Yes (Death)
  Sender: FDA-Public Use
  Company Number: None

PATIENT
  Age: 22 Year
  Sex: Male

DRUGS (10)
  1. ZOFRAN ODT [Concomitant]
     Active Substance: ONDANSETRON HYDROCHLORIDE
  2. VOLTAREN [Concomitant]
     Active Substance: DICLOFENAC SODIUM
  3. PROAIR HFA [Concomitant]
     Active Substance: ALBUTEROL SULFATE
  4. ERYPED [Concomitant]
     Active Substance: ERYTHROMYCIN ETHYLSUCCINATE
  5. OXYCODONE [Concomitant]
     Active Substance: OXYCODONE
  6. CLONAZEPAM ODT [Concomitant]
     Active Substance: CLONAZEPAM
  7. CLONIDINE. [Concomitant]
     Active Substance: CLONIDINE
  8. LIDOCAINE. [Concomitant]
     Active Substance: LIDOCAINE
  9. TOBRAMYCIN 40MG/ML NOVARTIS [Suspect]
     Active Substance: TOBRAMYCIN
     Indication: CYSTIC FIBROSIS
     Dosage: 4ML VIA NEBULIZER BID VIA NEBULIZER
     Dates: start: 20160224, end: 20160418
  10. NOTRIPTYLINE [Concomitant]

REACTIONS (1)
  - Death [None]

NARRATIVE: CASE EVENT DATE: 20160418
